FAERS Safety Report 7050550-7 (Version None)
Quarter: 2010Q4

REPORT INFORMATION
  Report Type: 
  Country: None (occurrence: None)
  Receive Date: 20101018
  Receipt Date: 20101005
  Transmission Date: 20110411
  Serious: Yes (Other)
  Sender: FDA-Public Use
  Company Number: GB-ELI_LILLY_AND_COMPANY-GB201009000457

PATIENT
  Sex: Male

DRUGS (1)
  1. PROZAC [Suspect]
     Dosage: 20 MG, UNKNOWN
     Route: 065
     Dates: start: 20090101

REACTIONS (7)
  - ERECTILE DYSFUNCTION [None]
  - HYPOAESTHESIA [None]
  - LIBIDO DECREASED [None]
  - ORGASM ABNORMAL [None]
  - PAIN IN EXTREMITY [None]
  - SCROTAL PAIN [None]
  - SEXUAL DYSFUNCTION [None]
